FAERS Safety Report 12643028 (Version 3)
Quarter: 2016Q3

REPORT INFORMATION
  Report Type: Spontaneous
  Country: US (occurrence: US)
  Receive Date: 20160811
  Receipt Date: 20160930
  Transmission Date: 20161109
  Serious: No
  Sender: FDA-Public Use
  Company Number: US-HORIZON-RAV-0156-2016

PATIENT
  Age: 14 Year
  Sex: Male
  Weight: 49 kg

DRUGS (3)
  1. PROPHREE [Concomitant]
     Indication: SUPPLEMENTATION THERAPY
  2. RAVICTI [Suspect]
     Active Substance: GLYCEROL PHENYLBUTYRATE
     Indication: ORNITHINE TRANSCARBAMOYLASE DEFICIENCY
     Dosage: 5 ML TID
  3. CYCLINEX [Concomitant]
     Indication: SUPPLEMENTATION THERAPY

REACTIONS (2)
  - Weight increased [Unknown]
  - Increased appetite [Unknown]
